FAERS Safety Report 11642853 (Version 2)
Quarter: 2015Q4

REPORT INFORMATION
  Report Type: Spontaneous
  Country: US (occurrence: US)
  Receive Date: 20151020
  Receipt Date: 20151127
  Transmission Date: 20160304
  Serious: No
  Sender: FDA-Public Use
  Company Number: US-ASTRAZENECA-2015SF00714

PATIENT
  Age: 80 Year
  Sex: Female
  Weight: 50 kg

DRUGS (9)
  1. AZOR [Concomitant]
     Active Substance: AMLODIPINE BESYLATE\OLMESARTAN MEDOXOMIL
     Dosage: 5 MG 20 MG ORAL
     Route: 048
  2. LORATADINE. [Concomitant]
     Active Substance: LORATADINE
     Route: 048
     Dates: start: 20150108
  3. VITAMIN D [Concomitant]
     Active Substance: CHOLECALCIFEROL
  4. ZOMETA [Suspect]
     Active Substance: ZOLEDRONIC ACID
     Route: 065
  5. ASPRIN [Concomitant]
     Active Substance: ASPIRIN
  6. FASLODEX [Suspect]
     Active Substance: FULVESTRANT
     Dosage: EVERY FOUR WEEKS
     Route: 030
     Dates: start: 201308
  7. CALCIUM [Concomitant]
     Active Substance: CALCIUM
  8. AROMASIN [Suspect]
     Active Substance: EXEMESTANE
     Route: 048
     Dates: start: 20140604
  9. XANAX [Suspect]
     Active Substance: ALPRAZOLAM
     Route: 065

REACTIONS (8)
  - Oedema [Unknown]
  - Disease progression [Unknown]
  - Essential hypertension [Unknown]
  - Cancer pain [Unknown]
  - Back pain [Unknown]
  - Dyspnoea exertional [Unknown]
  - Arthralgia [Unknown]
  - Lymphoedema [Unknown]
